FAERS Safety Report 16491188 (Version 1)
Quarter: 2019Q2

REPORT INFORMATION
  Report Type: Report from Study
  Country: ES (occurrence: ES)
  Receive Date: 20190628
  Receipt Date: 20190628
  Transmission Date: 20190711
  Serious: Yes (Other)
  Sender: FDA-Public Use
  Company Number: ES-ROCHE-2341956

PATIENT
  Age: 68 Year
  Sex: Female

DRUGS (10)
  1. CARBOPLATIN. [Suspect]
     Active Substance: CARBOPLATIN
     Indication: OVARIAN CANCER
     Dosage: LAST DOSE ON 07/MAY/2019
     Route: 042
     Dates: start: 20181219
  2. FUROSEMIDA [FUROSEMIDE] [Concomitant]
     Route: 048
  3. BEVACIZUMAB. [Suspect]
     Active Substance: BEVACIZUMAB
     Indication: OVARIAN CANCER
     Dosage: LAST DOSE ON 07/MAY/2019
     Route: 042
     Dates: start: 20181219
  4. ENALAPRIL [Concomitant]
     Active Substance: ENALAPRIL
     Route: 048
  5. BLINDED ATEZOLIZUMAB [Suspect]
     Active Substance: ATEZOLIZUMAB
     Indication: OVARIAN CANCER
     Dosage: LAST DOSE ON 07/MAY/2019
     Route: 042
     Dates: start: 20181219
  6. EUTIROX [Concomitant]
     Active Substance: LEVOTHYROXINE SODIUM
     Route: 048
  7. PEGYLATED LIPOSOMAL DOXORUBICIN [Suspect]
     Active Substance: DOXORUBICIN
     Indication: OVARIAN CANCER
     Dosage: LAST DOSE ON 07/MAY/2019
     Route: 042
     Dates: start: 20181219
  8. AMLODIPINO [AMLODIPINE] [Concomitant]
     Route: 048
  9. PAROXETINE. [Concomitant]
     Active Substance: PAROXETINE
     Route: 048
  10. ZOLPIDEM [Concomitant]
     Active Substance: ZOLPIDEM\ZOLPIDEM TARTRATE
     Route: 048

REACTIONS (1)
  - Rash macular [Recovered/Resolved]

NARRATIVE: CASE EVENT DATE: 20190514
